FAERS Safety Report 7201549-9 (Version None)
Quarter: 2010Q4

REPORT INFORMATION
  Report Type: 
  Country: None (occurrence: None)
  Receive Date: 20101229
  Receipt Date: 20101221
  Transmission Date: 20110411
  Serious: Yes (Hospitalization, Other)
  Sender: FDA-Public Use
  Company Number: JP-PFIZER INC-2010151207

PATIENT
  Age: 77 Year
  Sex: Female
  Weight: 40 kg

DRUGS (6)
  1. LYRICA [Suspect]
     Indication: POST HERPETIC NEURALGIA
     Dosage: 50 MG, 1X/DAY
     Route: 048
     Dates: start: 20101004, end: 20101114
  2. HYPEN [Suspect]
     Dosage: UNK
     Route: 048
     Dates: start: 20101004, end: 20101114
  3. MUCOSTA [Suspect]
     Dosage: UNK
     Route: 048
     Dates: start: 20101004, end: 20101114
  4. METHYCOBAL [Concomitant]
     Dosage: 500 UG, 3X/DAY
     Route: 048
  5. PRAVASTATIN SODIUM [Concomitant]
     Dosage: 10 MG, 1X/DAY
  6. NORVASC [Concomitant]
     Dosage: 5 MG, 1X/DAY

REACTIONS (3)
  - ERYTHEMA [None]
  - HEPATIC FUNCTION ABNORMAL [None]
  - PYREXIA [None]
